FAERS Safety Report 21368400 (Version 1)
Quarter: 2022Q3

REPORT INFORMATION
  Report Type: Spontaneous
  Country: US (occurrence: US)
  Receive Date: 20220923
  Receipt Date: 20220923
  Transmission Date: 20221026
  Serious: Yes (Other)
  Sender: FDA-Public Use
  Company Number: US-TEVA-2022-US-2075328

PATIENT
  Sex: Female

DRUGS (1)
  1. BUSPIRONE [Suspect]
     Active Substance: BUSPIRONE HYDROCHLORIDE
     Indication: Anxiety
     Route: 065

REACTIONS (4)
  - Foreign body in throat [Unknown]
  - Nausea [Unknown]
  - Product use complaint [Unknown]
  - Product physical issue [Unknown]

NARRATIVE: CASE EVENT DATE: 20220821
